FAERS Safety Report 19139846 (Version 1)
Quarter: 2021Q2

REPORT INFORMATION
  Report Type: Report from Study
  Country: PE (occurrence: PE)
  Receive Date: 20210415
  Receipt Date: 20210415
  Transmission Date: 20210717
  Serious: Yes (Other)
  Sender: FDA-Public Use
  Company Number: PE-TEVA-2021-PE-1899493

PATIENT
  Age: 67 Year
  Sex: Female

DRUGS (1)
  1. FILARTROS [Suspect]
     Active Substance: LEFLUNOMIDE
     Route: 065
     Dates: start: 201409, end: 201603

REACTIONS (3)
  - Pharyngeal swelling [Recovered/Resolved]
  - Lip swelling [Recovered/Resolved]
  - Poisoning [Recovered/Resolved]

NARRATIVE: CASE EVENT DATE: 201603
